FAERS Safety Report 22816528 (Version 5)
Quarter: 2023Q4

REPORT INFORMATION
  Report Type: Spontaneous
  Country: US (occurrence: US)
  Receive Date: 20230811
  Receipt Date: 20231027
  Transmission Date: 20240110
  Serious: Yes (Life-Threatening, Hospitalization, Other)
  Sender: FDA-Public Use
  Company Number: US-009507513-2308USA002002

PATIENT
  Sex: Female

DRUGS (26)
  1. SIVEXTRO [Suspect]
     Active Substance: TEDIZOLID PHOSPHATE
     Indication: Staphylococcal infection
     Dosage: UNK
     Route: 048
     Dates: start: 201411
  2. SIVEXTRO [Suspect]
     Active Substance: TEDIZOLID PHOSPHATE
     Indication: Infection
     Dosage: 200 MILLIGRAM, QD
     Route: 048
     Dates: start: 2017
  3. FLAGYL [Suspect]
     Active Substance: METRONIDAZOLE\METRONIDAZOLE HYDROCHLORIDE
     Indication: Infection
     Dosage: UNK
  4. CIPRO [Suspect]
     Active Substance: CIPROFLOXACIN HYDROCHLORIDE
     Indication: Infection
     Dosage: UNK
  5. METRONIDAZOLE [Concomitant]
     Active Substance: METRONIDAZOLE
     Dosage: UNK
  6. ACTIGALL [Concomitant]
     Active Substance: URSODIOL
  7. PROPYLTHIOURACIL [Concomitant]
     Active Substance: PROPYLTHIOURACIL
  8. DIMETHICONE [Concomitant]
     Active Substance: DIMETHICONE
  9. LEVEMIR [Concomitant]
     Active Substance: INSULIN DETEMIR
  10. NOVOLOG [Concomitant]
     Active Substance: INSULIN ASPART
  11. PREVACID [Concomitant]
     Active Substance: LANSOPRAZOLE
  12. METOPROLOL [Concomitant]
     Active Substance: METOPROLOL
  13. CARDIZEN [Concomitant]
  14. SPIRONOLACTONE [Concomitant]
     Active Substance: SPIRONOLACTONE
  15. ZYRTEC [Concomitant]
     Active Substance: CETIRIZINE HYDROCHLORIDE
  16. CATAPRES-TTS [Concomitant]
     Active Substance: CLONIDINE
  17. ECOTRIN [Concomitant]
     Active Substance: ASPIRIN
  18. OXYCODONE [Concomitant]
     Active Substance: OXYCODONE
  19. TYLENOL [Concomitant]
     Active Substance: ACETAMINOPHEN
  20. GABAPENTIN [Concomitant]
     Active Substance: GABAPENTIN
  21. PRAVASTATIN SODIUM [Concomitant]
     Active Substance: PRAVASTATIN SODIUM
  22. LAC DOSE [Concomitant]
  23. ONDANSETRON [Concomitant]
     Active Substance: ONDANSETRON
  24. PREVID [Concomitant]
  25. ZOFRAN [Concomitant]
     Active Substance: ONDANSETRON HYDROCHLORIDE
  26. INSULIN NOS [Concomitant]
     Active Substance: INSULIN NOS

REACTIONS (7)
  - Staphylococcal infection [Not Recovered/Not Resolved]
  - Pain [Not Recovered/Not Resolved]
  - Immunodeficiency [Unknown]
  - Illness [Not Recovered/Not Resolved]
  - Incorrect product administration duration [Unknown]
  - Product dose omission issue [Unknown]
  - Product availability issue [Unknown]

NARRATIVE: CASE EVENT DATE: 20230101
